FAERS Safety Report 25935725 (Version 1)
Quarter: 2025Q4

REPORT INFORMATION
  Report Type: Report from Study
  Country: US (occurrence: US)
  Receive Date: 20251017
  Receipt Date: 20251017
  Transmission Date: 20260117
  Serious: Yes (Other)
  Sender: EMD SERONO INC
  Company Number: US-Merck Healthcare KGaA-2025051133

PATIENT
  Age: 77 Year
  Sex: Male

DRUGS (1)
  1. TEPMETKO [Suspect]
     Active Substance: TEPOTINIB HYDROCHLORIDE
     Indication: Lung neoplasm malignant
     Dosage: 225MG ORAL QD

REACTIONS (16)
  - Gallbladder enlargement [Unknown]
  - Gastrointestinal disorder [Unknown]
  - Pain of skin [Unknown]
  - Erythema [Unknown]
  - Constipation [Recovering/Resolving]
  - Cardiomegaly [Unknown]
  - Insomnia [Recovering/Resolving]
  - Fatigue [Unknown]
  - Dyspnoea [Unknown]
  - Dizziness [Unknown]
  - Hyperhidrosis [Unknown]
  - Back pain [Unknown]
  - Weight decreased [Unknown]
  - Skin erosion [Unknown]
  - Oedema [Recovering/Resolving]
  - Off label use [Unknown]
